FAERS Safety Report 12646913 (Version 1)
Quarter: 2016Q3

REPORT INFORMATION
  Report Type: Report from Study
  Country: GB (occurrence: GB)
  Receive Date: 20160812
  Receipt Date: 20160812
  Transmission Date: 20161109
  Serious: Yes (Life-Threatening, Hospitalization)
  Sender: FDA-Public Use
  Company Number: GB-ACCORD-043202

PATIENT
  Age: 46 Year
  Sex: Female
  Weight: 58.5 kg

DRUGS (16)
  1. EPIRUBICIN [Suspect]
     Active Substance: EPIRUBICIN
     Indication: HER-2 POSITIVE BREAST CANCER
     Dosage: 100 MG/M2
     Route: 042
     Dates: start: 20141029
  2. DOCETAXEL. [Concomitant]
     Active Substance: DOCETAXEL
     Indication: HER-2 POSITIVE BREAST CANCER
     Route: 042
  3. PARACETAMOL [Concomitant]
     Active Substance: ACETAMINOPHEN
     Indication: HEADACHE
     Route: 048
     Dates: start: 20141105, end: 20141124
  4. SODIUM CHLORIDE. [Concomitant]
     Active Substance: SODIUM CHLORIDE
  5. DOMPERIDONE/DOMPERIDONE MALEATE [Suspect]
     Active Substance: DOMPERIDONE\DOMPERIDONE MALEATE
     Indication: PRODUCT USED FOR UNKNOWN INDICATION
     Route: 048
     Dates: start: 20141030, end: 20150405
  6. LOPERAMIDE [Concomitant]
     Active Substance: LOPERAMIDE
     Route: 048
     Dates: start: 20141223
  7. ONDANSETRON/ONDANSETRON HYDROCHLORIDE [Concomitant]
     Route: 048
     Dates: start: 20141019, end: 20141231
  8. TRASTUZUMAB [Concomitant]
     Active Substance: TRASTUZUMAB
     Indication: HER-2 POSITIVE BREAST CANCER
     Dosage: DAY 1 OF CYCLE 1
     Route: 042
     Dates: start: 20150129
  9. IBUPROFEN. [Concomitant]
     Active Substance: IBUPROFEN
     Route: 048
     Dates: start: 20141110, end: 20160119
  10. PERTUZUMAB [Concomitant]
     Active Substance: PERTUZUMAB
     Indication: HER-2 POSITIVE BREAST CANCER
     Dosage: DAY 1 OF CYCLE 1 ONLY.
     Route: 042
     Dates: start: 20150129
  11. POTASSIUM BICARBONATE. [Concomitant]
     Active Substance: POTASSIUM BICARBONATE
     Indication: BLOOD POTASSIUM DECREASED
     Route: 048
     Dates: start: 20141223, end: 20141226
  12. GRANULOCYTE COLONY STIMULATING [Concomitant]
     Active Substance: GRANULOCYTE COLONY-STIMULATING FACTOR NOS
     Route: 058
     Dates: start: 20141105, end: 20150413
  13. FLUOROURACIL. [Suspect]
     Active Substance: FLUOROURACIL
     Indication: HER-2 POSITIVE BREAST CANCER
     Dosage: CYCLES 1-4, 500 MG/M2
     Route: 042
     Dates: start: 20141029
  14. CYCLOPHOSPHAMIDE/CYCLOPHOSPHAMIDE MONOHYDRATE [Suspect]
     Active Substance: CYCLOPHOSPHAMIDE
     Indication: HER-2 POSITIVE BREAST CANCER
     Dosage: 600 MG/M2
     Route: 042
     Dates: start: 20141029
  15. CODEINE [Concomitant]
     Active Substance: CODEINE
     Indication: HEADACHE
     Route: 048
     Dates: start: 20141125, end: 20150603
  16. DEXAMETHASONE. [Concomitant]
     Active Substance: DEXAMETHASONE
     Route: 042
     Dates: start: 20141029, end: 20141231

REACTIONS (14)
  - Neutropenic sepsis [Recovered/Resolved]
  - Anaemia [Unknown]
  - Mouth ulceration [None]
  - Oropharyngeal pain [None]
  - Pyrexia [Recovered/Resolved]
  - Nausea [None]
  - Diarrhoea [None]
  - Constipation [None]
  - Back pain [None]
  - Hypotension [None]
  - Alopecia [None]
  - Dysgeusia [None]
  - Bone pain [None]
  - Headache [None]

NARRATIVE: CASE EVENT DATE: 20141130
